FAERS Safety Report 5699323-8 (Version None)
Quarter: 2008Q2

REPORT INFORMATION
  Report Type: 
  Country: None (occurrence: None)
  Receive Date: 20080404
  Receipt Date: 20080331
  Transmission Date: 20081010
  Serious: Yes (Hospitalization, Other)
  Sender: FDA-Public Use
  Company Number: 2008SP005117

PATIENT
  Age: 47 Year
  Sex: Male

DRUGS (8)
  1. PEG-INTRON [Suspect]
     Indication: HEPATITIS C
     Dosage: 150 MG; QW; SC
     Route: 058
     Dates: start: 20071005, end: 20080312
  2. RIBAVIRIN [Suspect]
     Indication: HEPATITIS C
     Dates: start: 20071001, end: 20080312
  3. EPOGEN [Suspect]
     Indication: DRUG USE FOR UNKNOWN INDICATION
     Dosage: 40000 IU; QW;
     Dates: start: 20071218
  4. ASPIRIN [Concomitant]
  5. PLAVIX [Concomitant]
  6. METOPROLOL TARTRATE [Concomitant]
  7. PACERONE [Concomitant]
  8. AMITRIPTYLINE HCL [Concomitant]

REACTIONS (3)
  - ACUTE MYOCARDIAL INFARCTION [None]
  - ANAEMIA [None]
  - HYPERTHYROIDISM [None]
